FAERS Safety Report 5726424-8 (Version None)
Quarter: 2008Q2

REPORT INFORMATION
  Report Type: 
  Country: None (occurrence: None)
  Receive Date: 20080502
  Receipt Date: 20080421
  Transmission Date: 20081010
  Serious: Yes (Other)
  Sender: FDA-Public Use
  Company Number: B0360413A

PATIENT
  Age: 37 Year
  Sex: Male

DRUGS (5)
  1. PAROXETINE HCL [Suspect]
     Route: 065
     Dates: start: 19970523
  2. NITRAZEPAM [Concomitant]
  3. ORLISTAT [Concomitant]
  4. DICLOFENAC [Concomitant]
  5. RIMONABANT [Concomitant]

REACTIONS (11)
  - AGGRESSION [None]
  - AGORAPHOBIA [None]
  - ANXIETY [None]
  - CRYING [None]
  - DRUG WITHDRAWAL SYNDROME [None]
  - IRRITABILITY [None]
  - MOOD SWINGS [None]
  - NAUSEA [None]
  - PANIC ATTACK [None]
  - SUICIDAL IDEATION [None]
  - TEARFULNESS [None]
